FAERS Safety Report 16395807 (Version 1)
Quarter: 2019Q2

REPORT INFORMATION
  Report Type: Spontaneous
  Country: US (occurrence: US)
  Receive Date: 20190605
  Receipt Date: 20190605
  Transmission Date: 20190711
  Serious: Yes (Death, Hospitalization)
  Sender: FDA-Public Use
  Company Number: US-MYLANLABS-2019M1053384

PATIENT
  Age: 59 Year
  Sex: Male

DRUGS (3)
  1. RIBOFLAVIN [Suspect]
     Active Substance: RIBOFLAVIN
     Indication: LACTIC ACIDOSIS
     Route: 048
  2. SODIUM BICARBONATE. [Suspect]
     Active Substance: SODIUM BICARBONATE
     Indication: LACTIC ACIDOSIS
     Route: 042
  3. THIAMINE. [Suspect]
     Active Substance: THIAMINE
     Indication: LACTIC ACIDOSIS
     Route: 042

REACTIONS (1)
  - Drug ineffective [Fatal]
